FAERS Safety Report 8548511-1 (Version None)
Quarter: 2012Q3

REPORT INFORMATION
  Report Type: 
  Country: None (occurrence: None)
  Receive Date: 20120720
  Receipt Date: 20120720
  Transmission Date: 20120928
  Serious: Yes (Other)
  Sender: FDA-Public Use
  Company Number: None

PATIENT
  Sex: Male

DRUGS (1)
  1. INLYTA [Suspect]
     Indication: RENAL CANCER
     Dosage: 5 MG BID PO
     Route: 048
     Dates: start: 20120710, end: 20120718

REACTIONS (5)
  - STOMATITIS [None]
  - HEADACHE [None]
  - DRY MOUTH [None]
  - RASH [None]
  - DRY THROAT [None]
